FAERS Safety Report 9116953 (Version 1)
Quarter: 2013Q1

REPORT INFORMATION
  Report Type: Spontaneous
  Country: US (occurrence: US)
  Receive Date: 20130225
  Receipt Date: 20130225
  Transmission Date: 20140127
  Serious: Yes (Other)
  Sender: FDA-Public Use
  Company Number: US-PFIZER INC-2013064903

PATIENT
  Age: 67 Year
  Sex: Female
  Weight: 55.78 kg

DRUGS (12)
  1. CYTOMEL [Suspect]
     Indication: HYPOTHYROIDISM
     Dosage: UNK
     Route: 048
  2. CYTOMEL [Suspect]
     Indication: FATIGUE
     Dosage: 25 UG, 1X/DAY
     Route: 048
     Dates: start: 201301
  3. CYTOMEL [Suspect]
     Indication: TOXICITY TO VARIOUS AGENTS
     Dosage: CUTTING 25 MCG TABLET INTO HALF
     Route: 048
     Dates: start: 201301
  4. LIOTHYRONINE SODIUM [Suspect]
     Indication: HYPOTHYROIDISM
     Dosage: 12.5 UG, UNK
     Dates: start: 2012
  5. LIOTHYRONINE SODIUM [Suspect]
     Indication: FATIGUE
  6. LIOTHYRONINE SODIUM [Suspect]
     Indication: TOXICITY TO VARIOUS AGENTS
  7. PROZAC [Concomitant]
     Dosage: 40 MG, 1X/DAY
  8. ZIAC [Concomitant]
     Indication: HYPERTENSION
     Dosage: 2.5/6.25 MG, UNK
  9. AMBIEN [Concomitant]
     Indication: SLEEP DISORDER
     Dosage: 10 MG, AS NEEDED
  10. SYNTHROID [Concomitant]
     Indication: HYPOTHYROIDISM
     Dosage: 100 UG, 1X/DAY
  11. SYNTHROID [Concomitant]
     Indication: FATIGUE
  12. SYNTHROID [Concomitant]
     Indication: TOXICITY TO VARIOUS AGENTS

REACTIONS (4)
  - Thyrotoxic crisis [Recovered/Resolved]
  - Hormone level abnormal [Recovered/Resolved]
  - Pruritus [Not Recovered/Not Resolved]
  - Urticaria [Not Recovered/Not Resolved]
